FAERS Safety Report 11779854 (Version 1)
Quarter: 2015Q4

REPORT INFORMATION
  Report Type: Report from Study
  Country: US (occurrence: US)
  Receive Date: 20151125
  Receipt Date: 20151125
  Transmission Date: 20160304
  Serious: Yes (Death)
  Sender: FDA-Public Use
  Company Number: US-B.I. PHARMACEUTICALS,INC./RIDGEFIELD-2015-BI-51334BP

PATIENT
  Age: 73 Year
  Sex: Female

DRUGS (2)
  1. OFEV [Suspect]
     Active Substance: NINTEDANIB
     Indication: IDIOPATHIC PULMONARY FIBROSIS
     Dosage: 300 MG
     Route: 048
     Dates: start: 20150916
  2. TYVASO [Concomitant]
     Active Substance: TREPROSTINIL
     Indication: PRODUCT USED FOR UNKNOWN INDICATION
     Route: 065

REACTIONS (11)
  - Vomiting [Unknown]
  - Cough [Unknown]
  - Fluid retention [Unknown]
  - Malaise [Unknown]
  - Nausea [Unknown]
  - Constipation [Unknown]
  - Oedema peripheral [Unknown]
  - Decreased appetite [Unknown]
  - Rash [Unknown]
  - Drug intolerance [Unknown]
  - Death [Fatal]

NARRATIVE: CASE EVENT DATE: 20151115
